FAERS Safety Report 14870886 (Version 1)
Quarter: 2018Q2

REPORT INFORMATION
  Report Type: Spontaneous
  Country: CH (occurrence: CH)
  Receive Date: 20180509
  Receipt Date: 20180509
  Transmission Date: 20180711
  Serious: Yes (Other)
  Sender: FDA-Public Use
  Company Number: CH-BAYER-2018-060758

PATIENT
  Sex: Male
  Weight: 70 kg

DRUGS (5)
  1. XOFIGO [Suspect]
     Active Substance: RADIUM RA-223 DICHLORIDE
     Indication: PROSTATE CANCER
     Dosage: 4.4 MBQ, ONCE
     Dates: start: 20180213, end: 20180213
  2. XOFIGO [Suspect]
     Active Substance: RADIUM RA-223 DICHLORIDE
     Indication: PROSTATE CANCER
     Dosage: 4.79 MBQ, ONCE
     Dates: start: 20171121, end: 20171121
  3. XOFIGO [Suspect]
     Active Substance: RADIUM RA-223 DICHLORIDE
     Indication: PROSTATE CANCER
     Dosage: 4.5 MBQ, ONCE
     Dates: start: 20180116, end: 20180116
  4. XOFIGO [Suspect]
     Active Substance: RADIUM RA-223 DICHLORIDE
     Indication: PROSTATE CANCER
     Dosage: 4.8 MBQ, ONCE
     Dates: start: 20171219, end: 20171219
  5. XOFIGO [Suspect]
     Active Substance: RADIUM RA-223 DICHLORIDE
     Indication: PROSTATE CANCER
     Dosage: 4.3 MBQ, ONCE
     Dates: start: 20180313, end: 20180313

REACTIONS (3)
  - Prostate cancer [None]
  - Prostatic specific antigen increased [None]
  - General physical health deterioration [None]

NARRATIVE: CASE EVENT DATE: 201803
